FAERS Safety Report 13490579 (Version 3)
Quarter: 2017Q3

REPORT INFORMATION
  Report Type: Spontaneous
  Country: BE (occurrence: BE)
  Receive Date: 20170427
  Receipt Date: 20170704
  Transmission Date: 20171127
  Serious: Yes (Hospitalization, Other)
  Sender: FDA-Public Use
  Company Number: BE-AMGEN-BELSP2017061290

PATIENT
  Age: 75 Year
  Sex: Male
  Weight: 86.7 kg

DRUGS (5)
  1. XGEVA [Suspect]
     Active Substance: DENOSUMAB
     Indication: PROSTATE CANCER
     Dosage: 120 MG, Q4WK
     Route: 058
     Dates: start: 20161227
  2. XGEVA [Suspect]
     Active Substance: DENOSUMAB
     Indication: METASTASES TO BONE
  3. STEOVIT FORTE [Concomitant]
     Dosage: UNK
     Dates: start: 20161227
  4. PDN [Concomitant]
     Active Substance: PREDNISOLONE ACETATE
     Indication: METASTASES TO BONE
  5. DOCETAXEL. [Suspect]
     Active Substance: DOCETAXEL
     Indication: METASTASES TO BONE
     Dosage: UNK
     Route: 065
     Dates: start: 20161227

REACTIONS (2)
  - Hypocalcaemia [Recovered/Resolved]
  - Prostate cancer recurrent [Unknown]

NARRATIVE: CASE EVENT DATE: 20170104
